FAERS Safety Report 8427649-3 (Version None)
Quarter: 2012Q2

REPORT INFORMATION
  Report Type: 
  Country: None (occurrence: None)
  Receive Date: 20120611
  Receipt Date: 20120604
  Transmission Date: 20120825
  Serious: Yes (Hospitalization, Other)
  Sender: FDA-Public Use
  Company Number: FR-PFIZER INC-2010042115

PATIENT
  Age: 53 Year
  Sex: Male
  Weight: 70 kg

DRUGS (7)
  1. METHOTREXATE [Concomitant]
     Indication: MUSCULOSKELETAL PAIN
     Dosage: UNK
     Route: 048
     Dates: start: 20030101
  2. METHOTREXATE [Concomitant]
     Indication: PSORIATIC ARTHROPATHY
  3. PLAVIX [Concomitant]
     Indication: ISCHAEMIC CARDIOMYOPATHY
     Dosage: UNK
     Route: 048
     Dates: start: 20080107
  4. LASIX [Concomitant]
     Indication: ISCHAEMIC CARDIOMYOPATHY
     Dosage: UNK
     Route: 048
     Dates: start: 20080107
  5. DILTIAZEM HCL [Concomitant]
     Indication: ISCHAEMIC CARDIOMYOPATHY
     Dosage: UNK
     Route: 048
     Dates: start: 20091208
  6. PERINDOPRIL ERBUMINE [Suspect]
     Dosage: UNK
     Route: 048
     Dates: end: 20100101
  7. ATORVASTATIN [Suspect]
     Indication: ISCHAEMIC CARDIOMYOPATHY
     Dosage: 10 MG, 1X/DAY
     Route: 048
     Dates: start: 20080107, end: 20100310

REACTIONS (2)
  - LUNG DISORDER [None]
  - PLEURISY [None]
